FAERS Safety Report 14206246 (Version 2)
Quarter: 2017Q4

REPORT INFORMATION
  Report Type: Spontaneous
  Country: FR (occurrence: FR)
  Receive Date: 20171120
  Receipt Date: 20171219
  Transmission Date: 20180321
  Serious: Yes (Other)
  Sender: FDA-Public Use
  Company Number: PHHY2017FR166616

PATIENT
  Age: 65 Year
  Sex: Female
  Weight: 54 kg

DRUGS (14)
  1. SKENAN [Concomitant]
     Active Substance: MORPHINE SULFATE
     Indication: PAIN
     Dosage: 20 MG, BID
     Route: 048
     Dates: start: 20170927, end: 201710
  2. CARBOPLATIN HOSPIRA [Suspect]
     Active Substance: CARBOPLATIN
     Indication: LUNG NEOPLASM MALIGNANT
     Dosage: 473 MG, ONCE/SINGLE
     Route: 042
     Dates: start: 20170927, end: 20170927
  3. ZOPHREN [Suspect]
     Active Substance: ONDANSETRON
     Indication: PROPHYLAXIS OF NAUSEA AND VOMITING
     Dosage: UNK
     Route: 048
     Dates: start: 20170927, end: 20170929
  4. ZOPHREN [Suspect]
     Active Substance: ONDANSETRON
     Indication: PROPHYLAXIS OF NAUSEA AND VOMITING
     Dosage: 2 DF, (2UG/L) UNK
     Route: 048
     Dates: start: 20170927, end: 20170929
  5. SOLUPRED [Suspect]
     Active Substance: PREDNISOLONE
     Indication: PREMEDICATION
     Dosage: INCONNUE
     Route: 048
  6. EMEND [Suspect]
     Active Substance: APREPITANT
     Indication: PROPHYLAXIS OF NAUSEA AND VOMITING
     Dosage: 80 MG, QD
     Route: 048
     Dates: start: 20170927, end: 20170928
  7. PRIMPERAN [Suspect]
     Active Substance: METOCLOPRAMIDE HYDROCHLORIDE
     Indication: PROPHYLAXIS OF NAUSEA AND VOMITING
     Dosage: UNK
     Route: 048
     Dates: start: 20170927
  8. PRIMPERAN [Suspect]
     Active Substance: METOCLOPRAMIDE HYDROCHLORIDE
     Indication: PROPHYLAXIS OF NAUSEA AND VOMITING
     Dosage: INCONNUE
     Route: 048
  9. MORPHINE SULFATE. [Suspect]
     Active Substance: MORPHINE SULFATE
     Indication: PAIN
     Dosage: 1 DF, PRN (EVERY 4 HOURS IN CASE OF PAIN)
     Route: 048
     Dates: start: 20170927, end: 201710
  10. SKENAN [Concomitant]
     Active Substance: MORPHINE SULFATE
     Indication: PAIN
  11. VITAMIN B12 [Concomitant]
     Active Substance: CYANOCOBALAMIN
     Indication: PREMEDICATION
     Route: 065
  12. ALIMTA [Suspect]
     Active Substance: PEMETREXED DISODIUM
     Indication: LUNG NEOPLASM MALIGNANT
     Dosage: 660 MG, ONCE/SINGLE
     Route: 042
     Dates: start: 20170927, end: 20170927
  13. SOLUPRED [Suspect]
     Active Substance: PREDNISOLONE
     Indication: PREMEDICATION
     Dosage: UNK
     Route: 048
     Dates: start: 20170927, end: 20170927
  14. VITAMIN B9 [Concomitant]
     Indication: PREMEDICATION
     Route: 065

REACTIONS (2)
  - Hepatocellular injury [Recovering/Resolving]
  - Hyponatraemia [Recovering/Resolving]

NARRATIVE: CASE EVENT DATE: 201710
